FAERS Safety Report 21668980 (Version 1)
Quarter: 2022Q4

REPORT INFORMATION
  Report Type: Spontaneous
  Country: US (occurrence: None)
  Receive Date: 20221201
  Receipt Date: 20221201
  Transmission Date: 20230113
  Serious: Yes (Other)
  Sender: FDA-Public Use
  Company Number: None

PATIENT
  Age: 63 Year
  Sex: Male
  Weight: 75.55 kg

DRUGS (6)
  1. PACLITAXEL [Suspect]
     Active Substance: PACLITAXEL
     Dosage: OTHER FREQUENCY : EVERY 21 DAYS;?
     Route: 042
  2. CINVANTI [Concomitant]
     Active Substance: APREPITANT
  3. DEXAMETHASONE [Concomitant]
     Active Substance: DEXAMETHASONE
  4. BENADRYL [Concomitant]
     Active Substance: DIPHENHYDRAMINE HYDROCHLORIDE
  5. ALOXI [Concomitant]
     Active Substance: PALONOSETRON HYDROCHLORIDE
  6. PEPCID [Concomitant]
     Active Substance: FAMOTIDINE

REACTIONS (3)
  - Dyspnoea [None]
  - Flushing [None]
  - Therapy cessation [None]

NARRATIVE: CASE EVENT DATE: 20221130
